FAERS Safety Report 5014617-7 (Version None)
Quarter: 2006Q2

REPORT INFORMATION
  Report Type: 
  Country: None (occurrence: None)
  Receive Date: 20060531
  Receipt Date: 20060526
  Transmission Date: 20061013
  Serious: Yes (Death)
  Sender: FDA-Public Use
  Company Number: JP-BRACCO-BRO-010177

PATIENT
  Age: 84 Year
  Sex: Female

DRUGS (2)
  1. IOPAMIRON [Suspect]
     Indication: GASTRIC CANCER
     Route: 042
     Dates: start: 20060518, end: 20060518
  2. IOPAMIRON [Suspect]
     Route: 042
     Dates: start: 20060518, end: 20060518

REACTIONS (5)
  - BLOOD PRESSURE IMMEASURABLE [None]
  - CONVULSION [None]
  - FEELING ABNORMAL [None]
  - LOSS OF CONSCIOUSNESS [None]
  - PULSE PRESSURE DECREASED [None]
